FAERS Safety Report 11820243 (Version 2)
Quarter: 2016Q1

REPORT INFORMATION
  Report Type: Report from Study
  Country: CA (occurrence: CA)
  Receive Date: 20151210
  Receipt Date: 20160118
  Transmission Date: 20160525
  Serious: Yes (Other)
  Sender: FDA-Public Use
  Company Number: CA-ROCHE-1640776

PATIENT
  Age: 69 Year
  Sex: Male

DRUGS (8)
  1. ESBRIET [Suspect]
     Active Substance: PIRFENIDONE
     Indication: IDIOPATHIC PULMONARY FIBROSIS
     Route: 048
     Dates: start: 20150909
  2. ACETYLSALICYLIC ACID [Concomitant]
     Active Substance: ASPIRIN
  3. TECTA [Concomitant]
     Active Substance: PANTOPRAZOLE MAGNESIUM
  4. CITALOPRAM [Concomitant]
     Active Substance: CITALOPRAM HYDROBROMIDE
  5. ESBRIET [Suspect]
     Active Substance: PIRFENIDONE
     Route: 048
     Dates: start: 20150916
  6. ACUPRIL [Concomitant]
  7. ESBRIET [Suspect]
     Active Substance: PIRFENIDONE
     Route: 048
     Dates: start: 20150923
  8. ROSUVASTATIN [Concomitant]
     Active Substance: ROSUVASTATIN

REACTIONS (12)
  - Pain [Unknown]
  - Diarrhoea [Unknown]
  - Nasopharyngitis [Not Recovered/Not Resolved]
  - Forced vital capacity decreased [Unknown]
  - Aspartate aminotransferase increased [Unknown]
  - Dyspepsia [Unknown]
  - Fatigue [Unknown]
  - Blood glucose increased [Not Recovered/Not Resolved]
  - Cough [Unknown]
  - Initial insomnia [Not Recovered/Not Resolved]
  - Abdominal distension [Not Recovered/Not Resolved]
  - Carbon monoxide diffusing capacity decreased [Unknown]

NARRATIVE: CASE EVENT DATE: 20150909
